FAERS Safety Report 12204120 (Version 3)
Quarter: 2016Q2

REPORT INFORMATION
  Report Type: Spontaneous
  Country: US (occurrence: US)
  Receive Date: 20160323
  Receipt Date: 20160422
  Transmission Date: 20160815
  Serious: Yes (Other)
  Sender: FDA-Public Use
  Company Number: US-PFIZER INC-2016167330

PATIENT
  Age: 54 Year
  Sex: Female

DRUGS (2)
  1. CHANTIX [Suspect]
     Active Substance: VARENICLINE TARTRATE
     Indication: SMOKING CESSATION THERAPY
     Dosage: 10 MG, 2X/DAY
     Dates: start: 201502, end: 201505
  2. CHANTIX [Suspect]
     Active Substance: VARENICLINE TARTRATE
     Dosage: 10 MG, 1X/DAY
     Dates: start: 201505, end: 20150601

REACTIONS (4)
  - Hallucination [Unknown]
  - Diarrhoea [Unknown]
  - Nightmare [Unknown]
  - Overdose [Unknown]

NARRATIVE: CASE EVENT DATE: 201502
